FAERS Safety Report 10389304 (Version 3)
Quarter: 2014Q4

REPORT INFORMATION
  Report Type: Report from Study
  Country: US (occurrence: US)
  Receive Date: 20140818
  Receipt Date: 20141027
  Transmission Date: 20150528
  Serious: Yes (Hospitalization)
  Sender: FDA-Public Use
  Company Number: US-BIOGENIDEC-2014BI074587

PATIENT
  Sex: Female

DRUGS (1)
  1. TYSABRI [Suspect]
     Active Substance: NATALIZUMAB
     Indication: MULTIPLE SCLEROSIS
     Route: 042
     Dates: start: 20080128

REACTIONS (6)
  - Pyelonephritis [Recovered/Resolved]
  - Multiple sclerosis [Unknown]
  - Mobility decreased [Unknown]
  - Memory impairment [Unknown]
  - Fear [Unknown]
  - Uhthoff^s phenomenon [Recovered/Resolved]
